FAERS Safety Report 6907331-1 (Version None)
Quarter: 2010Q3

REPORT INFORMATION
  Report Type: 
  Country: None (occurrence: None)
  Receive Date: 20100802
  Receipt Date: 20100719
  Transmission Date: 20110219
  Serious: Yes (Hospitalization)
  Sender: FDA-Public Use
  Company Number: 644320

PATIENT
  Age: 62 Year
  Sex: Male

DRUGS (11)
  1. HEPARIN SODIUM INJECTION [Suspect]
     Indication: PRODUCT USED FOR UNKNOWN INDICATION
     Dosage: INTRAVENOUS
     Route: 042
  2. (WARFARIN) [Suspect]
     Indication: PRODUCT USED FOR UNKNOWN INDICATION
     Dosage: 3.0 MILLIGRAM, 1 EVERY 1 DAY(S), ORAL
     Route: 048
  3. DIGOXIN [Concomitant]
  4. (DOCUSATE SODIUM) [Concomitant]
  5. (DOMPERIDONE) [Concomitant]
  6. (ACETYLSALICYLIC ACID ENTERIC COATED) [Concomitant]
  7. LIPITOR [Concomitant]
  8. (METOPROLOL) [Concomitant]
  9. (ALL OTHER THERAPEUTIC PRODUCTS) [Concomitant]
  10. REGULAR INSULIN [Concomitant]
  11. CIPROFLOXACIN [Concomitant]

REACTIONS (8)
  - APNOEIC ATTACK [None]
  - CEREBRAL INFARCTION [None]
  - DEPRESSED LEVEL OF CONSCIOUSNESS [None]
  - GASTRIC ULCER [None]
  - HAEMOGLOBIN ABNORMAL [None]
  - PETECHIAE [None]
  - UNRESPONSIVE TO STIMULI [None]
  - UPPER GASTROINTESTINAL HAEMORRHAGE [None]
